FAERS Safety Report 8304023-1 (Version None)
Quarter: 2012Q2

REPORT INFORMATION
  Report Type: 
  Country: None (occurrence: None)
  Receive Date: 20120420
  Receipt Date: 20120420
  Transmission Date: 20120825
  Serious: Yes (Other)
  Sender: FDA-Public Use
  Company Number: None

PATIENT
  Age: 52 Year
  Sex: Female
  Weight: 88.905 kg

DRUGS (1)
  1. ESTRADERM [Suspect]
     Indication: ARTIFICIAL MENOPAUSE
     Dates: start: 20120408, end: 20120416

REACTIONS (1)
  - APPLICATION SITE RASH [None]
